FAERS Safety Report 6076212-0 (Version None)
Quarter: 2009Q1

REPORT INFORMATION
  Report Type: 
  Country: None (occurrence: None)
  Receive Date: 20090212
  Receipt Date: 20090203
  Transmission Date: 20090719
  Serious: Yes (Other)
  Sender: FDA-Public Use
  Company Number: CN-PFIZER INC-2009165037

PATIENT

DRUGS (1)
  1. MEDROL [Suspect]
     Indication: HERPES VIRUS INFECTION
     Route: 048

REACTIONS (1)
  - POLYURIA [None]
